FAERS Safety Report 5284963-0 (Version None)
Quarter: 2007Q1

REPORT INFORMATION
  Report Type: 
  Country: None (occurrence: None)
  Receive Date: 20070328
  Receipt Date: 20070315
  Transmission Date: 20070707
  Serious: No
  Sender: FDA-Public Use
  Company Number: 2006JP004820

PATIENT
  Age: 66 Year
  Sex: Female

DRUGS (5)
  1. VESICARE [Suspect]
     Indication: POLLAKIURIA
     Dosage: SEE IMAGE
     Route: 048
     Dates: start: 20060908, end: 20060101
  2. VESICARE [Suspect]
     Indication: POLLAKIURIA
     Dosage: SEE IMAGE
     Route: 048
     Dates: start: 20060101, end: 20061201
  3. DOGMATYL TABLET [Concomitant]
  4. ALPRAZOLAM [Concomitant]
  5. ETHYL ICOSAPENTATE (ETHYL ICOSAPENTATE) CAPSULE) [Concomitant]

REACTIONS (2)
  - ATRIAL FIBRILLATION [None]
  - BRADYCARDIA [None]
